FAERS Safety Report 7500813-3 (Version None)
Quarter: 2011Q2

REPORT INFORMATION
  Report Type: 
  Country: None (occurrence: None)
  Receive Date: 20110524
  Receipt Date: 20110512
  Transmission Date: 20111010
  Serious: Yes (Hospitalization)
  Sender: FDA-Public Use
  Company Number: A0793607A

PATIENT
  Age: 49 Year
  Sex: Female
  Weight: 100 kg

DRUGS (6)
  1. ASPIRIN [Concomitant]
     Dates: start: 20060401
  2. AVANDIA [Suspect]
     Dosage: 8MG PER DAY
     Route: 048
     Dates: start: 20000101, end: 20060414
  3. AVANDAMET [Suspect]
     Route: 048
  4. TOPROL-XL [Concomitant]
     Dates: start: 20060401
  5. LIPITOR [Concomitant]
     Dates: start: 20060401
  6. RAMIPRIL [Concomitant]
     Dates: start: 20060401

REACTIONS (4)
  - MYOCARDIAL INFARCTION [None]
  - CEREBROVASCULAR ACCIDENT [None]
  - CARDIAC FAILURE CONGESTIVE [None]
  - CARDIAC DISORDER [None]
